FAERS Safety Report 4872910-2 (Version None)
Quarter: 2006Q1

REPORT INFORMATION
  Report Type: 
  Country: None (occurrence: None)
  Receive Date: 20060105
  Receipt Date: 20050112
  Transmission Date: 20060701
  Serious: No
  Sender: FDA-Public Use
  Company Number: US-BRISTOL-MYERS SQUIBB COMPANY-12822961

PATIENT
  Age: 49 Year
  Sex: Female

DRUGS (2)
  1. SERZONE [Suspect]
     Route: 048
  2. DEPAKOTE ER [Concomitant]

REACTIONS (1)
  - DYSGEUSIA [None]
